APPROVED DRUG PRODUCT: ADVIL
Active Ingredient: IBUPROFEN
Strength: 200MG
Dosage Form/Route: TABLET;ORAL
Application: N018989 | Product #001
Applicant: HALEON US HOLDINGS LLC
Approved: May 18, 1984 | RLD: Yes | RS: Yes | Type: OTC